FAERS Safety Report 19615130 (Version 1)
Quarter: 2021Q3

REPORT INFORMATION
  Report Type: Spontaneous
  Country: IL (occurrence: IL)
  Receive Date: 20210727
  Receipt Date: 20210727
  Transmission Date: 20211014
  Serious: Yes (Hospitalization)
  Sender: FDA-Public Use
  Company Number: IL-HQ SPECIALTY-IL-2021INT000115

PATIENT
  Age: 75 Year
  Sex: Male

DRUGS (1)
  1. LEVETIRACETAM. [Suspect]
     Active Substance: LEVETIRACETAM
     Indication: EPILEPSY
     Dosage: 500 MG, BID
     Route: 065

REACTIONS (4)
  - Urinary incontinence [Unknown]
  - Discomfort [Recovering/Resolving]
  - Gait disturbance [Recovering/Resolving]
  - Cognitive disorder [Recovering/Resolving]
